FAERS Safety Report 4978427-9 (Version None)
Quarter: 2006Q1

REPORT INFORMATION
  Report Type: 
  Country: None (occurrence: None)
  Receive Date: 20060228
  Receipt Date: 20051214
  Transmission Date: 20060701
  Serious: No
  Sender: FDA-Public Use
  Company Number: 05P-163-0319610-00

PATIENT
  Age: 42 Year
  Sex: Female
  Weight: 58.514 kg

DRUGS (1)
  1. DILAUDID [Suspect]
     Dosage: INTRAVENOUS
     Route: 042

REACTIONS (2)
  - MENTAL IMPAIRMENT [None]
  - OVERDOSE [None]
